FAERS Safety Report 7080977-9 (Version None)
Quarter: 2010Q4

REPORT INFORMATION
  Report Type: 
  Country: None (occurrence: None)
  Receive Date: 20101103
  Receipt Date: 20101026
  Transmission Date: 20110411
  Serious: Yes (Hospitalization)
  Sender: FDA-Public Use
  Company Number: US-AMGEN-USASP2010001665

PATIENT

DRUGS (1)
  1. ENBREL [Suspect]
     Indication: RHEUMATOID ARTHRITIS
     Dates: start: 20091208

REACTIONS (4)
  - CHEST DISCOMFORT [None]
  - DIARRHOEA [None]
  - POLLAKIURIA [None]
  - PYREXIA [None]
